FAERS Safety Report 8612378-3 (Version None)
Quarter: 2012Q3

REPORT INFORMATION
  Report Type: 
  Country: None (occurrence: None)
  Receive Date: 20120822
  Receipt Date: 20120815
  Transmission Date: 20120928
  Serious: Yes (Death, Congenital Anomaly)
  Sender: FDA-Public Use
  Company Number: PHHY2012US072233

PATIENT

DRUGS (3)
  1. TYLENOL W/ CODEINE NO. 3 [Suspect]
  2. TACROLIMUS [Suspect]
  3. ACETAMINOPHEN [Suspect]
     Route: 064

REACTIONS (8)
  - PERIVENTRICULAR LEUKOMALACIA [None]
  - HYDROPS FOETALIS [None]
  - FOETAL EXPOSURE DURING PREGNANCY [None]
  - BRAIN INJURY [None]
  - CEREBRAL HAEMORRHAGE FOETAL [None]
  - INTRAVENTRICULAR HAEMORRHAGE [None]
  - CEREBRAL VENTRICLE DILATATION [None]
  - FOETAL DEATH [None]
